FAERS Safety Report 4469430-6 (Version None)
Quarter: 2004Q4

REPORT INFORMATION
  Report Type: 
  Country: None (occurrence: None)
  Receive Date: 20041005
  Receipt Date: 20040924
  Transmission Date: 20050328
  Serious: Yes (Other)
  Sender: FDA-Public Use
  Company Number: US013818

PATIENT
  Age: 4 Year
  Sex: Male
  Weight: 20.4119 kg

DRUGS (1)
  1. ACTIQ [Suspect]
     Dosage: 600 UG ONCE BUCCAL
     Route: 002
     Dates: start: 20040917, end: 20040917

REACTIONS (3)
  - ACCIDENTAL EXPOSURE [None]
  - DEVICE FAILURE [None]
  - MEDICATION ERROR [None]
